FAERS Safety Report 7381207-0 (Version None)
Quarter: 2011Q1

REPORT INFORMATION
  Report Type: 
  Country: None (occurrence: None)
  Receive Date: 20110329
  Receipt Date: 20110315
  Transmission Date: 20110831
  Serious: Yes (Hospitalization, Other)
  Sender: FDA-Public Use
  Company Number: US-JNJFOC-20110309987

PATIENT
  Age: 64 Year
  Sex: Male

DRUGS (8)
  1. VERAPAMIL [Suspect]
     Indication: PROSTATE CANCER
     Route: 048
  2. LEVOTHYROXINE SODIUM [Suspect]
     Indication: PROSTATE CANCER
     Route: 048
  3. PREDNISONE [Suspect]
     Indication: PROSTATE CANCER
     Route: 048
  4. KETOCONAZOLE [Suspect]
     Indication: PROSTATE CANCER
     Route: 048
  5. SIMVASTATIN [Interacting]
     Indication: DYSLIPIDAEMIA
     Dosage: 10/80 MG
     Route: 065
  6. LEUPROLIDE ACETATE [Suspect]
     Indication: PROSTATE CANCER
     Route: 030
  7. FENOFIBRATE [Suspect]
     Indication: PROSTATE CANCER
     Route: 048
  8. KETOCONAZOLE [Suspect]
     Route: 048

REACTIONS (5)
  - OVERDOSE [None]
  - OFF LABEL USE [None]
  - RENAL FAILURE ACUTE [None]
  - RHABDOMYOLYSIS [None]
  - DRUG INTERACTION [None]
